FAERS Safety Report 9227208 (Version 1)
Quarter: 2013Q2

REPORT INFORMATION
  Report Type: Spontaneous
  Country: US (occurrence: None)
  Receive Date: 20130411
  Receipt Date: 20130411
  Transmission Date: 20140414
  Serious: Yes (Hospitalization)
  Sender: FDA-Public Use
  Company Number: None

PATIENT
  Age: 76 Year
  Sex: Female
  Weight: 42.64 kg

DRUGS (14)
  1. ERLOTINIB [Suspect]
     Indication: NON-SMALL CELL LUNG CANCER
     Dates: start: 20120803, end: 20130410
  2. HYDROXYCHLOROQUINE [Suspect]
     Indication: NON-SMALL CELL LUNG CANCER
     Dates: start: 20120803, end: 20130410
  3. CLONAZEPAM [Concomitant]
  4. CRESTOR [Concomitant]
  5. IBUPROFEN [Concomitant]
  6. IPRATROPIUM INHALER [Concomitant]
  7. LEVOXYL [Concomitant]
  8. MEGACE [Concomitant]
  9. MIRTAZAPINE [Concomitant]
  10. NYSTATIN [Concomitant]
  11. OXYCONTIN [Concomitant]
  12. VESICARE [Concomitant]
  13. VICODIN [Concomitant]
  14. ZOMETA [Concomitant]

REACTIONS (1)
  - Spinal column stenosis [None]
